FAERS Safety Report 25648068 (Version 1)
Quarter: 2025Q3

REPORT INFORMATION
  Report Type: Spontaneous
  Country: SG (occurrence: SG)
  Receive Date: 20250806
  Receipt Date: 20250806
  Transmission Date: 20251021
  Serious: Yes (Other)
  Sender: GILEAD
  Company Number: SG-GILEAD-2025-0723208

PATIENT
  Age: 65 Year
  Sex: Female

DRUGS (2)
  1. SACITUZUMAB GOVITECAN-HZIY [Suspect]
     Active Substance: SACITUZUMAB GOVITECAN-HZIY
     Indication: Product used for unknown indication
     Route: 065
  2. SACITUZUMAB GOVITECAN-HZIY [Suspect]
     Active Substance: SACITUZUMAB GOVITECAN-HZIY
     Route: 065

REACTIONS (3)
  - Febrile neutropenia [Unknown]
  - Gastroenteritis Escherichia coli [Unknown]
  - Hypotension [Unknown]
